FAERS Safety Report 9812323 (Version 3)
Quarter: 2014Q1

REPORT INFORMATION
  Report Type: Report from Study
  Country: US (occurrence: US)
  Receive Date: 20140113
  Receipt Date: 20140220
  Transmission Date: 20141002
  Serious: Yes (Hospitalization)
  Sender: FDA-Public Use
  Company Number: US-ROCHE-1332293

PATIENT
  Age: 76 Year
  Sex: Male
  Weight: 82.17 kg

DRUGS (18)
  1. RANIBIZUMAB [Suspect]
     Indication: DIABETIC RETINAL OEDEMA
     Dosage: IN BOTH EYES, IN OS AS REQUIRED
     Route: 050
     Dates: start: 20131107, end: 20140108
  2. ARICEPT [Concomitant]
  3. DIGOXIN [Concomitant]
     Indication: CARDIAC FAILURE
     Route: 048
     Dates: start: 2010
  4. VASOTEC [Concomitant]
     Indication: HYPERTENSION
     Route: 048
     Dates: start: 1991
  5. DEMADEX [Concomitant]
     Indication: HYPERTENSION
     Route: 048
     Dates: start: 1991
  6. CRESTOR [Concomitant]
     Indication: HYPERCHOLESTEROLAEMIA
     Route: 048
     Dates: start: 2010
  7. CRESTOR [Concomitant]
     Route: 065
  8. COREG [Concomitant]
     Indication: HYPERTENSION
     Route: 048
     Dates: start: 1991
  9. CELEXA (UNITED STATES) [Concomitant]
     Indication: DEPRESSION
     Route: 048
     Dates: start: 2010
  10. CLOPIDOGREL [Concomitant]
     Indication: HYPERTENSION
     Route: 048
     Dates: start: 1991
  11. ARICEPT [Concomitant]
     Indication: AMNESIA
     Route: 048
     Dates: start: 2011
  12. HUMULIN [Concomitant]
     Indication: TYPE 2 DIABETES MELLITUS
     Dosage: DOSE:30 UNITS
     Route: 030
     Dates: start: 1986
  13. ELIQUIS [Concomitant]
     Route: 065
  14. LASIX [Concomitant]
     Dosage: X THREE DOSES
     Route: 042
  15. LEVAQUIN [Concomitant]
  16. DEMADEX [Concomitant]
  17. TIAZAC (UNITED STATES) [Concomitant]
     Route: 065
  18. GLIPIZIDE [Concomitant]
     Route: 065

REACTIONS (1)
  - Myocardial infarction [Unknown]
